FAERS Safety Report 25213023 (Version 1)
Quarter: 2025Q2

REPORT INFORMATION
  Report Type: Report from Study
  Country: BR (occurrence: BR)
  Receive Date: 20250418
  Receipt Date: 20250418
  Transmission Date: 20250716
  Serious: Yes (Death, Hospitalization, Other)
  Sender: ABBVIE
  Company Number: BR-ABBVIE-6235121

PATIENT
  Age: 19 Year
  Sex: Female
  Weight: 52 kg

DRUGS (1)
  1. SKYRIZI [Suspect]
     Active Substance: RISANKIZUMAB-RZAA
     Indication: Psoriasis
     Route: 058
     Dates: start: 20250214, end: 20250316

REACTIONS (6)
  - Encephalitis autoimmune [Fatal]
  - Seizure [Recovered/Resolved]
  - Seizure [Recovered/Resolved]
  - Seizure [Not Recovered/Not Resolved]
  - Headache [Recovered/Resolved]
  - Nausea [Recovered/Resolved]

NARRATIVE: CASE EVENT DATE: 20250314
